FAERS Safety Report 7629989-4 (Version None)
Quarter: 2011Q3

REPORT INFORMATION
  Report Type: 
  Country: None (occurrence: None)
  Receive Date: 20110722
  Receipt Date: 20110719
  Transmission Date: 20111222
  Serious: Yes (Other)
  Sender: FDA-Public Use
  Company Number: GB-MERCK-1107GBR00076

PATIENT
  Age: 79 Year
  Sex: Male
  Weight: 87 kg

DRUGS (4)
  1. ZETIA [Suspect]
     Indication: CARDIOVASCULAR EVENT PROPHYLAXIS
     Route: 048
     Dates: start: 20100128, end: 20110608
  2. ASPIRIN [Concomitant]
     Route: 048
     Dates: start: 20090414
  3. ZETIA [Suspect]
     Indication: MYOCARDIAL ISCHAEMIA
     Route: 048
     Dates: start: 20100128, end: 20110608
  4. AMLODIPINE [Concomitant]
     Route: 048
     Dates: start: 20100520

REACTIONS (1)
  - MUSCULAR WEAKNESS [None]
